FAERS Safety Report 8875839 (Version 2)
Quarter: 2012Q4

REPORT INFORMATION
  Report Type: 
  Country: JP (occurrence: JP)
  Receive Date: 20121030
  Receipt Date: 20121126
  Transmission Date: 20130627
  Serious: Yes (Hospitalization, Disabling)
  Sender: FDA-Public Use
  Company Number: JP-GLAXOSMITHKLINE-B0840599A

PATIENT
  Age: 44 None
  Sex: Male

DRUGS (7)
  1. LAMICTAL [Suspect]
     Indication: BIPOLAR I DISORDER
     Dosage: 25MG Per day
     Route: 048
     Dates: start: 20120919, end: 20121002
  2. LAMICTAL [Suspect]
     Indication: BIPOLAR I DISORDER
     Dosage: 25MG Twice per day
     Route: 048
     Dates: start: 20121003, end: 20121016
  3. LAMICTAL [Suspect]
     Indication: BIPOLAR I DISORDER
     Dosage: 50MG Twice per day
     Route: 048
     Dates: start: 20121017, end: 20121018
  4. ZYPREXA [Suspect]
     Indication: BIPOLAR I DISORDER
     Dosage: 10MG Per day
     Route: 048
     Dates: start: 20120416, end: 20121016
  5. ZYPREXA [Suspect]
     Indication: BIPOLAR I DISORDER
     Dosage: 5MG Per day
     Route: 048
     Dates: start: 20121017, end: 20121018
  6. DEPROMEL [Concomitant]
     Indication: OBSESSIVE-COMPULSIVE DISORDER
     Dosage: 50MG Twice per day
     Route: 048
     Dates: end: 20121022
  7. ETIZOLAM [Concomitant]
     Indication: IRRITABILITY
     Dosage: 1MG Three times per day
     Route: 048

REACTIONS (16)
  - Rhabdomyolysis [Recovering/Resolving]
  - Blood creatine phosphokinase increased [Unknown]
  - Vomiting [Recovering/Resolving]
  - Feeling abnormal [Unknown]
  - Headache [Unknown]
  - Vertigo [Unknown]
  - Mobility decreased [Unknown]
  - Oropharyngeal pain [Unknown]
  - Dyspnoea [Unknown]
  - Feeling abnormal [Unknown]
  - Gait disturbance [Unknown]
  - Hypoaesthesia [Unknown]
  - Sensory disturbance [Unknown]
  - Tremor [Unknown]
  - Blood lactate dehydrogenase increased [Unknown]
  - Blood creatine phosphokinase MB increased [Unknown]
